FAERS Safety Report 25376831 (Version 1)
Quarter: 2025Q2

REPORT INFORMATION
  Report Type: Spontaneous
  Country: CA (occurrence: CA)
  Receive Date: 20250530
  Receipt Date: 20250530
  Transmission Date: 20250717
  Serious: Yes (Hospitalization, Other)
  Sender: BOEHRINGER INGELHEIM
  Company Number: CA-BoehringerIngelheim-2025-BI-027101

PATIENT
  Age: 60 Year
  Sex: Male

DRUGS (12)
  1. OFEV [Suspect]
     Active Substance: NINTEDANIB
     Indication: Idiopathic pulmonary fibrosis
     Dates: start: 202201, end: 2025
  2. IPRATROPIUM BROMIDE [Suspect]
     Active Substance: IPRATROPIUM BROMIDE
     Indication: Product used for unknown indication
  3. LOPERAMIDE [Concomitant]
     Active Substance: LOPERAMIDE
     Indication: Diarrhoea
     Dosage: 2 MG BY MOUTH 4 TIMES A DAY AS NEEDED
  4. MS Contin (Morphine) [Concomitant]
     Dosage: 12 HOUR TABLET - 15 MG BY MOUTH DAILY
  5. MORPHINE [Concomitant]
     Active Substance: MORPHINE
     Dosage: 5 MG IMMEDIATE RELEASE TABLET BY MOUTH EVERY 4 HOURS AS NEEDED
  6. Oxygen gas [Concomitant]
  7. PANTOPRAZOLE MAGNESIUM [Concomitant]
     Active Substance: PANTOPRAZOLE MAGNESIUM
     Dosage: DELAYED RELEASE
  8. ALBUTEROL [Concomitant]
     Active Substance: ALBUTEROL
     Dosage: INHALE 2 PUFFS EVERY 4 HOURS AS NEEDED.
  9. TRAZODONE [Concomitant]
     Active Substance: TRAZODONE HYDROCHLORIDE
  10. Vitamin D3 (cholecaciferol) [Concomitant]
  11. Tylenol #3 (acetaminophen-codeine-caffeine) [Concomitant]
     Dosage: 300-30-15 MG - TAKE 2 TABLETS BY MOUTH EVERY 4 HOURS AS NEEDED
  12. SERTRALINE [Concomitant]
     Active Substance: SERTRALINE HYDROCHLORIDE
     Dosage: 100 MG BY MOUTH DAILY

REACTIONS (4)
  - Pancreatitis [Recovered/Resolved]
  - Pancreatitis relapsing [Unknown]
  - Gastrointestinal toxicity [Unknown]
  - Gastrointestinal disorder [Unknown]

NARRATIVE: CASE EVENT DATE: 20220101
